FAERS Safety Report 6074700-4 (Version None)
Quarter: 2009Q1

REPORT INFORMATION
  Report Type: 
  Country: None (occurrence: None)
  Receive Date: 20090209
  Receipt Date: 20090209
  Transmission Date: 20090719
  Serious: No
  Sender: FDA-Public Use
  Company Number: None

PATIENT
  Sex: Female
  Weight: 74.3899 kg

DRUGS (1)
  1. RESTASIS [Suspect]
     Indication: DRY EYE
     Dosage: SINGLE-USE VIAL 2X DAILY - 12 HRS APART
     Dates: start: 20090104, end: 20090108

REACTIONS (6)
  - CRYING [None]
  - EYE INFLAMMATION [None]
  - EYE IRRITATION [None]
  - EYE PAIN [None]
  - EYELID OEDEMA [None]
  - OCULAR HYPERAEMIA [None]
